FAERS Safety Report 9941018 (Version 2)
Quarter: 2014Q1

REPORT INFORMATION
  Report Type: Spontaneous
  Country: US (occurrence: US)
  Receive Date: 20140303
  Receipt Date: 20140328
  Transmission Date: 20141002
  Serious: No
  Sender: FDA-Public Use
  Company Number: US-PFIZER INC-2014058301

PATIENT
  Age: 52 Year
  Sex: Male

DRUGS (5)
  1. GENOTROPIN MQ [Suspect]
     Indication: GROWTH HORMONE DEFICIENCY
     Dosage: 0.2 MG, ALTERNATE DAY
     Route: 058
     Dates: start: 20130717, end: 201309
  2. HYDROCORTISONE [Concomitant]
     Dosage: 7.5 MG, DAILY
  3. FLUDROCORTISONE [Concomitant]
     Dosage: UNK, AS NEEDED
  4. ZOFRAN [Concomitant]
     Dosage: 8 MG, UNK
  5. TRAMADOL [Concomitant]
     Dosage: 50 MG, AS NEEDED

REACTIONS (1)
  - Arthropathy [Recovered/Resolved]
